FAERS Safety Report 24669171 (Version 1)
Quarter: 2024Q4

REPORT INFORMATION
  Report Type: Spontaneous
  Country: FR (occurrence: FR)
  Receive Date: 20241127
  Receipt Date: 20241127
  Transmission Date: 20250115
  Serious: Yes (Hospitalization, Other)
  Sender: AUROBINDO
  Company Number: FR-AFSSAPS-AN2024001545

PATIENT
  Age: 59 Year
  Sex: Male
  Weight: 75 kg

DRUGS (6)
  1. PEMETREXED [Suspect]
     Active Substance: PEMETREXED
     Indication: Adenocarcinoma
     Dosage: 930 MILLIGRAM
     Route: 042
     Dates: start: 20231129, end: 20240412
  2. PEMBROLIZUMAB [Suspect]
     Active Substance: PEMBROLIZUMAB
     Indication: Adenocarcinoma
     Dosage: 200 MILLIGRAM
     Route: 042
     Dates: start: 20231129, end: 20240412
  3. EMEND [Suspect]
     Active Substance: APREPITANT
     Indication: Premedication
     Dosage: 125 MILLIGRAM, CYCLICAL
     Route: 048
     Dates: start: 2023
  4. ONDANSETRON [Suspect]
     Active Substance: ONDANSETRON
     Indication: Premedication
     Dosage: 2 DOSAGE FORM, FOR 5 DAYS
     Route: 048
     Dates: start: 2023
  5. PREDNISONE [Suspect]
     Active Substance: PREDNISONE
     Indication: Premedication
     Dosage: 40 MILLIGRAM, CYCLICAL
     Route: 048
     Dates: start: 2023
  6. ELIQUIS [Concomitant]
     Active Substance: APIXABAN
     Indication: Product used for unknown indication
     Dosage: 2 DOSAGE FORM, ONCE A DAY
     Route: 048
     Dates: start: 20240203, end: 20240326

REACTIONS (1)
  - Ischaemic stroke [Recovering/Resolving]

NARRATIVE: CASE EVENT DATE: 20240323
